FAERS Safety Report 6739766-4 (Version None)
Quarter: 2010Q2

REPORT INFORMATION
  Report Type: 
  Country: None (occurrence: None)
  Receive Date: 20100525
  Receipt Date: 20100519
  Transmission Date: 20101027
  Serious: Yes (Other)
  Sender: FDA-Public Use
  Company Number: AU-BRISTOL-MYERS SQUIBB COMPANY-15112873

PATIENT
  Sex: Female

DRUGS (1)
  1. AVAPRO [Suspect]
     Dosage: AVAPRO 300MG IN THE MORNING AND AVAPRO 150MG AT NIGHT
     Dates: start: 20091201

REACTIONS (1)
  - POLYMYALGIA RHEUMATICA [None]
